FAERS Safety Report 15410853 (Version 1)
Quarter: 2018Q4

REPORT INFORMATION
  Report Type: Spontaneous
  Country: KZ (occurrence: KZ)
  Receive Date: 20180921
  Receipt Date: 20180921
  Transmission Date: 20190204
  Serious: Yes (Death, Other)
  Sender: FDA-Public Use
  Company Number: KZ-DRREDDYS-GPV/KAZ/18/0104124

PATIENT
  Age: 43 Year
  Sex: Male

DRUGS (1)
  1. NOVIGAN NEO [Suspect]
     Active Substance: IBUPROFEN
     Indication: HEADACHE

REACTIONS (1)
  - Anaphylactic shock [Fatal]
